FAERS Safety Report 6758938-6 (Version None)
Quarter: 2010Q2

REPORT INFORMATION
  Report Type: 
  Country: None (occurrence: None)
  Receive Date: 20100607
  Receipt Date: 20100506
  Transmission Date: 20101027
  Serious: No
  Sender: FDA-Public Use
  Company Number: US-BAYER-201015326BCC

PATIENT
  Age: 91 Year
  Sex: Female
  Weight: 55 kg

DRUGS (11)
  1. ALEVE (CAPLET) [Suspect]
     Indication: ARTHRALGIA
     Dosage: TOTAL DAILY DOSE: 440 MG  UNIT DOSE: 220 MG
     Route: 048
     Dates: start: 20100503, end: 20100503
  2. ALEVE (CAPLET) [Suspect]
     Dosage: TOTAL DAILY DOSE: 440 MG  UNIT DOSE: 220 MG
     Route: 048
     Dates: start: 20100504
  3. ACTONEL [Concomitant]
     Route: 065
  4. MULTI-VITAMIN [Concomitant]
     Route: 065
  5. AMITIZA [Concomitant]
     Route: 065
  6. EVISTA [Concomitant]
     Route: 065
  7. FOLIC ACID [Concomitant]
     Route: 065
  8. VITAMIN B1 TAB [Concomitant]
     Route: 065
  9. VITAMIN B-12 [Concomitant]
     Route: 065
  10. VITAMIN-MINERAL COMPOUND TAB [Concomitant]
     Route: 065
  11. CALCITRIOL [Concomitant]
     Route: 065

REACTIONS (1)
  - OEDEMA PERIPHERAL [None]
